FAERS Safety Report 5201180-0 (Version None)
Quarter: 2007Q1

REPORT INFORMATION
  Report Type: 
  Country: None (occurrence: None)
  Receive Date: 20070108
  Receipt Date: 20070102
  Transmission Date: 20070707
  Serious: Yes (Hospitalization)
  Sender: FDA-Public Use
  Company Number: 2007CG00020

PATIENT
  Age: 29002 Day
  Sex: Male

DRUGS (10)
  1. CRESTOR [Suspect]
     Route: 048
  2. PREVISCAN [Interacting]
     Route: 048
     Dates: end: 20061121
  3. PREVISCAN [Interacting]
     Route: 048
     Dates: start: 20061122
  4. PLAVIX [Interacting]
     Route: 048
     Dates: end: 20061121
  5. ASPIRIN [Interacting]
     Route: 048
  6. CORDARONE [Interacting]
     Route: 048
  7. NEXIUM [Concomitant]
     Route: 048
  8. CARDENSIEL [Concomitant]
  9. TRIATEC [Concomitant]
  10. MODOPAR [Concomitant]

REACTIONS (3)
  - DRUG INTERACTION [None]
  - EPISTAXIS [None]
  - INTERNATIONAL NORMALISED RATIO INCREASED [None]
